FAERS Safety Report 21750633 (Version 1)
Quarter: 2022Q4

REPORT INFORMATION
  Report Type: Spontaneous
  Country: CA (occurrence: CA)
  Receive Date: 20221219
  Receipt Date: 20221219
  Transmission Date: 20230112
  Serious: Yes (Death, Hospitalization)
  Sender: FDA-Public Use
  Company Number: CA-AstraZeneca-2022A407172

PATIENT
  Sex: Female

DRUGS (1)
  1. TRASTUZUMAB DERUXTECAN [Suspect]
     Active Substance: TRASTUZUMAB DERUXTECAN
     Indication: Product use in unapproved indication
     Dosage: UNK
     Route: 042

REACTIONS (4)
  - Interstitial lung disease [Fatal]
  - Lung disorder [Fatal]
  - Tachycardia [Fatal]
  - Off label use [Fatal]
